FAERS Safety Report 23318909 (Version 3)
Quarter: 2024Q1

REPORT INFORMATION
  Report Type: Other
  Country: CA (occurrence: CA)
  Receive Date: 20231220
  Receipt Date: 20240124
  Transmission Date: 20240409
  Serious: Yes (Other)
  Sender: FDA-Public Use
  Company Number: CA-APOTEX-2023AP018012

PATIENT
  Sex: Male

DRUGS (2)
  1. IMATINIB [Suspect]
     Active Substance: IMATINIB
     Indication: Gastrointestinal stromal tumour
     Dosage: 400 MILLIGRAM, QD
     Route: 048
     Dates: start: 20231013
  2. IMATINIB [Suspect]
     Active Substance: IMATINIB
     Indication: Off label use

REACTIONS (6)
  - Rectal haemorrhage [Unknown]
  - Feeling cold [Unknown]
  - Oropharyngeal pain [Unknown]
  - Weight decreased [Unknown]
  - Conjunctivitis [Unknown]
  - Constipation [Unknown]

NARRATIVE: CASE EVENT DATE: 20230101
